FAERS Safety Report 15881895 (Version 1)
Quarter: 2019Q1

REPORT INFORMATION
  Report Type: Spontaneous
  Country: US (occurrence: US)
  Receive Date: 20190128
  Receipt Date: 20190128
  Transmission Date: 20190417
  Serious: Yes (Hospitalization, Other)
  Sender: FDA-Public Use
  Company Number: US-IMPAX LABORATORIES, LLC-2019-IPXL-00167

PATIENT
  Age: 85 Year
  Sex: Female
  Weight: 74 kg

DRUGS (10)
  1. ATENOLOL. [Concomitant]
     Active Substance: ATENOLOL
     Indication: HYPERTENSION
     Dosage: 75 MILLIGRAM, QD
     Route: 048
     Dates: start: 2005, end: 20190109
  2. ZOFRAN [Concomitant]
     Active Substance: ONDANSETRON HYDROCHLORIDE
     Indication: PRODUCT USED FOR UNKNOWN INDICATION
     Dosage: 4 MILLIGRAM
     Route: 048
     Dates: start: 20190110, end: 20190110
  3. PREDNISONE. [Suspect]
     Active Substance: PREDNISONE
     Dosage: 5 MILLIGRAM,QD
     Route: 048
     Dates: start: 20181221, end: 20181222
  4. NORTHERA [Suspect]
     Active Substance: DROXIDOPA
     Indication: PRODUCT USED FOR UNKNOWN INDICATION
     Dosage: UNK
     Route: 065
     Dates: start: 201703
  5. PREDNISONE. [Suspect]
     Active Substance: PREDNISONE
     Indication: POLYMYALGIA RHEUMATICA
     Dosage: 20 MILLIGRAM, QD
     Route: 048
     Dates: start: 20181210, end: 20181217
  6. XANAX [Concomitant]
     Active Substance: ALPRAZOLAM
     Indication: INSOMNIA
     Dosage: 0.5 MILLIGRAM
     Route: 048
     Dates: start: 20190110, end: 20190110
  7. RYTARY [Suspect]
     Active Substance: CARBIDOPA\LEVODOPA
     Indication: PARKINSON^S DISEASE
     Dosage: 2 DOSAGE FORM, QID
     Route: 048
     Dates: start: 201703
  8. DIGOXIN. [Concomitant]
     Active Substance: DIGOXIN
     Indication: PRODUCT USED FOR UNKNOWN INDICATION
     Dosage: 250 MILLIGRAM, QD
     Route: 048
     Dates: start: 20181231, end: 20190107
  9. PREDNISONE. [Suspect]
     Active Substance: PREDNISONE
     Dosage: 10 MILLIGRAM, QD
     Route: 048
     Dates: start: 20181218, end: 20181220
  10. DIGOXIN. [Concomitant]
     Active Substance: DIGOXIN
     Dosage: 125 MILLIGRAM, QD
     Route: 048
     Dates: start: 20190110

REACTIONS (6)
  - Syncope [Unknown]
  - Extrasystoles [Unknown]
  - Head injury [Unknown]
  - Upper limb fracture [Unknown]
  - Hypertension [Unknown]
  - Atrial flutter [Unknown]

NARRATIVE: CASE EVENT DATE: 201704
